FAERS Safety Report 5057030-9 (Version None)
Quarter: 2006Q2

REPORT INFORMATION
  Report Type: 
  Country: None (occurrence: None)
  Receive Date: 20060622
  Receipt Date: 20060111
  Transmission Date: 20061013
  Serious: Yes (Other)
  Sender: FDA-Public Use
  Company Number: US-JNJFOC-20060102544

PATIENT
  Age: 62 Year
  Sex: Female
  Weight: 88.905 kg

DRUGS (11)
  1. DURAGESIC-100 [Suspect]
     Indication: PAIN
     Dosage: 100 UG/ HR, 1 IN 72 HOUR, TRANSDERMAL
     Route: 062
     Dates: start: 20040601
  2. MORPHINE [Concomitant]
  3. NORCO [Concomitant]
  4. XANAX [Concomitant]
  5. COUMADIN [Concomitant]
  6. LOTENSIN [Concomitant]
  7. FLEXERIL [Concomitant]
  8. PREDNISONE TAB [Concomitant]
  9. PLAQUENIL [Concomitant]
  10. NEXIUM [Concomitant]
  11. LOPRESSOR [Concomitant]

REACTIONS (2)
  - FALL [None]
  - SPINAL FRACTURE [None]
